FAERS Safety Report 15678735 (Version 1)
Quarter: 2018Q4

REPORT INFORMATION
  Report Type: Spontaneous
  Country: US (occurrence: US)
  Receive Date: 20181201
  Receipt Date: 20181201
  Transmission Date: 20190205
  Serious: Yes (Disabling, Other)
  Sender: FDA-Public Use
  Company Number: None

PATIENT
  Age: 61 Year
  Sex: Female
  Weight: 119.25 kg

DRUGS (5)
  1. TYLENOL WITH CODEINE [Concomitant]
     Active Substance: ACETAMINOPHEN\CODEINE PHOSPHATE
  2. LASIX [Concomitant]
     Active Substance: FUROSEMIDE
  3. CARDIZEM [Concomitant]
     Active Substance: DILTIAZEM HYDROCHLORIDE
  4. LOSARTAN POTASSIUM. [Suspect]
     Active Substance: LOSARTAN POTASSIUM
     Indication: BLOOD PRESSURE MEASUREMENT
     Dosage: ?          QUANTITY:90 TABLET(S);?
     Route: 048
     Dates: start: 20180101, end: 20181025
  5. MOTRIN [Concomitant]
     Active Substance: IBUPROFEN

REACTIONS (9)
  - Dyspnoea [None]
  - Chest pain [None]
  - Cough [None]
  - Blood pressure increased [None]
  - Unevaluable event [None]
  - Alopecia [None]
  - Pain in extremity [None]
  - Swelling [None]
  - Gait disturbance [None]

NARRATIVE: CASE EVENT DATE: 20180212
